FAERS Safety Report 7071215-1 (Version None)
Quarter: 2010Q4

REPORT INFORMATION
  Report Type: 
  Country: None (occurrence: None)
  Receive Date: 20101029
  Receipt Date: 20101019
  Transmission Date: 20110411
  Serious: Yes (Hospitalization)
  Sender: FDA-Public Use
  Company Number: CA-JNJFOC-20100407490

PATIENT
  Sex: Male
  Weight: 77 kg

DRUGS (12)
  1. REMICADE [Suspect]
     Indication: CROHN'S DISEASE
     Route: 042
  2. DILANTIN [Concomitant]
  3. BISOPROLOL [Concomitant]
  4. LOPERAMIDE [Concomitant]
  5. AZATHIOPRINE [Concomitant]
  6. ASPIRIN [Concomitant]
  7. VITAMIN B-12 [Concomitant]
     Route: 050
  8. VITAMIN B-12 [Concomitant]
  9. LORAZEPAM [Concomitant]
  10. PANTOLOC [Concomitant]
  11. PROPAFENONE HCL [Concomitant]
  12. DOMPERIDONE [Concomitant]

REACTIONS (1)
  - ATRIAL FIBRILLATION [None]
